FAERS Safety Report 18352695 (Version 1)
Quarter: 2020Q4

REPORT INFORMATION
  Report Type: Spontaneous
  Country: FR (occurrence: FR)
  Receive Date: 20201007
  Receipt Date: 20201007
  Transmission Date: 20210114
  Serious: Yes (Disabling)
  Sender: FDA-Public Use
  Company Number: FR-AUROBINDO-AUR-APL-2020-050832

PATIENT
  Sex: Female
  Weight: 60 kg

DRUGS (5)
  1. RAMIPRIL. [Suspect]
     Active Substance: RAMIPRIL
     Indication: PRODUCT USED FOR UNKNOWN INDICATION
     Dosage: 1.25 MILLIGRAM
     Route: 048
  2. KARDEGIC [Suspect]
     Active Substance: ASPIRIN DL-LYSINE
     Indication: PRODUCT USED FOR UNKNOWN INDICATION
     Dosage: 75 MILLIGRAM
     Route: 048
  3. IMMUCYST [Suspect]
     Active Substance: BACILLUS CALMETTE-GUERIN SUBSTRAIN CONNAUGHT LIVE ANTIGEN
     Indication: BLADDER CANCER
     Dosage: 81 MILLIGRAM
     Route: 043
     Dates: start: 201902, end: 201904
  4. ROSUVASTATIN. [Suspect]
     Active Substance: ROSUVASTATIN
     Indication: PRODUCT USED FOR UNKNOWN INDICATION
     Dosage: 40 MILLIGRAM
     Route: 048
  5. IMMUCYST [Suspect]
     Active Substance: BACILLUS CALMETTE-GUERIN SUBSTRAIN CONNAUGHT LIVE ANTIGEN
     Dosage: 81 MG
     Route: 043
     Dates: start: 201907, end: 201908

REACTIONS (5)
  - Myalgia [Recovering/Resolving]
  - Insomnia [Recovering/Resolving]
  - Arthralgia [Recovering/Resolving]
  - Rheumatic disorder [Recovering/Resolving]
  - Peripheral swelling [Recovering/Resolving]

NARRATIVE: CASE EVENT DATE: 201903
